FAERS Safety Report 7797706-3 (Version None)
Quarter: 2011Q4

REPORT INFORMATION
  Report Type: 
  Country: None (occurrence: None)
  Receive Date: 20111005
  Receipt Date: 20110926
  Transmission Date: 20120403
  Serious: Yes (Other)
  Sender: FDA-Public Use
  Company Number: PHHY2011BD86259

PATIENT
  Age: 26 Year
  Sex: Female

DRUGS (1)
  1. SEBIVO [Suspect]
     Indication: HEPATITIS B
     Dosage: UNK UKN, UNK
     Route: 048

REACTIONS (2)
  - STILLBIRTH [None]
  - MATERNAL EXPOSURE DURING PREGNANCY [None]
